FAERS Safety Report 4630411-0 (Version None)
Quarter: 2005Q2

REPORT INFORMATION
  Report Type: 
  Country: None (occurrence: None)
  Receive Date: 20050406
  Receipt Date: 20050319
  Transmission Date: 20051028
  Serious: Yes (Death)
  Sender: FDA-Public Use
  Company Number: DZ-SANOFI-SYNTHELABO-A01200501702

PATIENT
  Age: 69 Year
  Sex: Female

DRUGS (6)
  1. PLAVIX [Suspect]
     Indication: ACUTE CORONARY SYNDROME
     Dosage: 75 MG OD ORAL
     Route: 048
     Dates: start: 20050226, end: 20050305
  2. LOVENOX [Suspect]
     Indication: ACUTE CORONARY SYNDROME
     Dosage: 60 MG BID SUBCUTANEOUS
     Route: 058
     Dates: start: 20050226, end: 20050305
  3. ACETYL SALICYLIC ACID USP BAT [Suspect]
     Dosage: 100 MG QD ORAL
     Route: 048
     Dates: start: 20050101, end: 20050101
  4. TENORMIN [Concomitant]
  5. AMLODIPINE [Concomitant]
  6. CO-TAREG (GALENIC /HYDROCHLOROTHIAZIDE/VALSARTAN/) [Concomitant]

REACTIONS (4)
  - DISSEMINATED INTRAVASCULAR COAGULATION [None]
  - DRUG INTERACTION [None]
  - SEPTIC SHOCK [None]
  - SHOCK HAEMORRHAGIC [None]
